FAERS Safety Report 19634769 (Version 1)
Quarter: 2021Q3

REPORT INFORMATION
  Report Type: Spontaneous
  Country: US (occurrence: US)
  Receive Date: 20210729
  Receipt Date: 20210729
  Transmission Date: 20211014
  Serious: Yes (Hospitalization)
  Sender: FDA-Public Use
  Company Number: None

PATIENT
  Age: 17 Year
  Sex: Female

DRUGS (10)
  1. ENALAPRIL [Concomitant]
     Active Substance: ENALAPRIL
  2. SYNTHROID [Concomitant]
     Active Substance: LEVOTHYROXINE SODIUM
  3. SILDENAFIL 20MG TAB [Suspect]
     Active Substance: SILDENAFIL
     Indication: PULMONARY ARTERIAL HYPERTENSION
     Dosage: ?          OTHER DOSE:1 TAB;?
     Route: 048
  4. ADVIL [Concomitant]
     Active Substance: IBUPROFEN
  5. DIGOXIN. [Concomitant]
     Active Substance: DIGOXIN
  6. ALBUTEROL. [Concomitant]
     Active Substance: ALBUTEROL
  7. WARFARIN [Concomitant]
     Active Substance: WARFARIN
  8. MCT OIL [Concomitant]
  9. ENTOCORT EC [Concomitant]
     Active Substance: BUDESONIDE
  10. LASIX [Concomitant]
     Active Substance: FUROSEMIDE

REACTIONS (4)
  - Transplant evaluation [None]
  - Thrombosis [None]
  - Cerebrovascular accident [None]
  - COVID-19 immunisation [None]

NARRATIVE: CASE EVENT DATE: 202106
